FAERS Safety Report 8447874-5 (Version None)
Quarter: 2012Q2

REPORT INFORMATION
  Report Type: 
  Country: None (occurrence: None)
  Receive Date: 20120612
  Receipt Date: 20120604
  Transmission Date: 20120825
  Serious: Yes (Hospitalization)
  Sender: FDA-Public Use
  Company Number: UTC-018766

PATIENT
  Age: 62 Year
  Sex: Female
  Weight: 90.9 kg

DRUGS (11)
  1. DIURETICS (DIURETICS) [Concomitant]
  2. TRACLEER [Concomitant]
  3. REMODULIN [Suspect]
     Indication: PULMONARY HYPERTENSION
     Dosage: 25.92 UG/KG (0.018 UG/KG, 1 IN 1 MIN), INTRAVENOUS (0.024 UG/KG), INTRAVENOUS INTRAVENOUS
     Route: 042
     Dates: start: 20120213
  4. REMODULIN [Suspect]
     Indication: CONNECTIVE TISSUE DISORDER
     Dosage: 25.92 UG/KG (0.018 UG/KG, 1 IN 1 MIN), INTRAVENOUS (0.024 UG/KG), INTRAVENOUS INTRAVENOUS
     Route: 042
     Dates: start: 20120213
  5. REMODULIN [Suspect]
     Indication: COR PULMONALE CHRONIC
     Dosage: 25.92 UG/KG (0.018 UG/KG, 1 IN 1 MIN), INTRAVENOUS (0.024 UG/KG), INTRAVENOUS INTRAVENOUS
     Route: 042
     Dates: start: 20120213
  6. REMODULIN [Suspect]
     Indication: PULMONARY HYPERTENSION
     Dosage: 25.92 UG/KG (0.018 UG/KG, 1 IN 1 MIN), INTRAVENOUS (0.024 UG/KG), INTRAVENOUS INTRAVENOUS
     Route: 042
     Dates: start: 20120223
  7. REMODULIN [Suspect]
     Indication: CONNECTIVE TISSUE DISORDER
     Dosage: 25.92 UG/KG (0.018 UG/KG, 1 IN 1 MIN), INTRAVENOUS (0.024 UG/KG), INTRAVENOUS INTRAVENOUS
     Route: 042
     Dates: start: 20120223
  8. REMODULIN [Suspect]
     Indication: COR PULMONALE CHRONIC
     Dosage: 25.92 UG/KG (0.018 UG/KG, 1 IN 1 MIN), INTRAVENOUS (0.024 UG/KG), INTRAVENOUS INTRAVENOUS
     Route: 042
     Dates: start: 20120223
  9. REMODULIN [Suspect]
     Indication: PULMONARY HYPERTENSION
     Dosage: 25.92 UG/KG (0.018 UG/KG, 1 IN 1 MIN), INTRAVENOUS (0.024 UG/KG), INTRAVENOUS INTRAVENOUS
     Route: 042
     Dates: start: 20120213
  10. REMODULIN [Suspect]
     Indication: CONNECTIVE TISSUE DISORDER
     Dosage: 25.92 UG/KG (0.018 UG/KG, 1 IN 1 MIN), INTRAVENOUS (0.024 UG/KG), INTRAVENOUS INTRAVENOUS
     Route: 042
     Dates: start: 20120213
  11. REMODULIN [Suspect]
     Indication: COR PULMONALE CHRONIC
     Dosage: 25.92 UG/KG (0.018 UG/KG, 1 IN 1 MIN), INTRAVENOUS (0.024 UG/KG), INTRAVENOUS INTRAVENOUS
     Route: 042
     Dates: start: 20120213

REACTIONS (5)
  - DRUG HYPERSENSITIVITY [None]
  - VOMITING [None]
  - CATHETER SITE PAIN [None]
  - MUSCULOSKELETAL PAIN [None]
  - CHEST PAIN [None]
